FAERS Safety Report 8042590-6 (Version None)
Quarter: 2012Q1

REPORT INFORMATION
  Report Type: 
  Country: None (occurrence: None)
  Receive Date: 20120112
  Receipt Date: 20120106
  Transmission Date: 20120608
  Serious: Yes (Life-Threatening)
  Sender: FDA-Public Use
  Company Number: DE-JHP PHARMACEUTICALS, LLC-JHP201200003

PATIENT
  Age: 47 Year
  Sex: Female

DRUGS (13)
  1. AMIODARONE HCL [Suspect]
     Indication: TACHYARRHYTHMIA
     Dosage: 200 MG, DAILY
     Route: 048
     Dates: start: 20090301
  2. BACLOFEN [Suspect]
     Indication: MUSCLE SPASTICITY
     Dosage: 25 MG, BID
     Route: 048
  3. BEZAFIBRAT [Concomitant]
     Dosage: UNK
     Dates: start: 20081201
  4. MARCUMAR [Concomitant]
     Dosage: ACCORDING TO INR
     Dates: start: 20081201
  5. TRIMIPRAMINE MALEATE [Suspect]
     Indication: DEPRESSION
     Dosage: 25 MG, DAILY
     Route: 048
  6. PROPAFENONE HCL [Concomitant]
     Dosage: 225 MG, UNK
     Dates: start: 20081201
  7. TRIMIPRAMINE MALEATE [Concomitant]
     Dosage: UNK
     Dates: start: 20081201
  8. LEVODOPA [Concomitant]
     Dosage: UNK
     Dates: start: 20081201
  9. FERROUS SULFATE TAB [Concomitant]
     Dosage: UNK
     Dates: start: 20081201
  10. DANTRIUM [Suspect]
     Indication: MUSCLE SPASTICITY
     Dosage: 25 MG, TID
     Route: 048
  11. SAB SIMPLEX [Concomitant]
     Dosage: UNK UNK, PRN
     Dates: start: 20081201
  12. DANTRAMACRIN [Concomitant]
     Dosage: 50 MG, UNK
     Dates: start: 20081201
  13. BACLOFEN [Concomitant]
     Dosage: 25 MG, UNK
     Dates: start: 20081201

REACTIONS (4)
  - MECHANICAL VENTILATION [None]
  - DISTURBANCE IN ATTENTION [None]
  - BRAIN OEDEMA [None]
  - HYPONATRAEMIA [None]
